FAERS Safety Report 15128290 (Version 2)
Quarter: 2018Q3

REPORT INFORMATION
  Report Type: Report from Study
  Country: None (occurrence: US)
  Receive Date: 20180711
  Receipt Date: 20180918
  Transmission Date: 20181010
  Serious: Yes (Hospitalization)
  Sender: FDA-Public Use
  Company Number: US-ABBVIE-18K-163-2414299-00

PATIENT
  Age: 55 Year
  Sex: Male

DRUGS (1)
  1. HUMIRA [Suspect]
     Active Substance: ADALIMUMAB
     Indication: CROHN^S DISEASE
     Route: 058

REACTIONS (9)
  - Blood iron decreased [Unknown]
  - Pneumonia [Recovering/Resolving]
  - Malnutrition [Unknown]
  - Vitamin B12 decreased [Unknown]
  - Vitamin B1 decreased [Unknown]
  - Blood potassium decreased [Unknown]
  - Influenza [Unknown]
  - Loss of consciousness [Unknown]
  - Dehydration [Unknown]

NARRATIVE: CASE EVENT DATE: 2018
